FAERS Safety Report 9163342 (Version 1)
Quarter: 2012Q4

REPORT INFORMATION
  Report Type: 
  Country: US (occurrence: US)
  Receive Date: 20121214
  Receipt Date: 20121214
  Transmission Date: 20130627
  Serious: Yes (Hospitalization, Other)
  Sender: FDA-Public Use
  Company Number: US-RB-040333-12

PATIENT
  Age: 36 Year
  Sex: Female

DRUGS (4)
  1. SUBOXONE TABLET [Suspect]
     Indication: PRODUCT USED FOR UNKNOWN INDICATION
     Dosage: Dosing details not provided
     Route: 065
  2. SUBOXONE TABLET [Suspect]
     Dosage: Dosing details not provided
     Route: 065
  3. SUBOXONE FILM [Suspect]
     Indication: DRUG DEPENDENCE
     Dosage: Suboxone film
     Route: 060
     Dates: start: 201111
  4. XANAX [Concomitant]
     Indication: ANXIETY
     Route: 065

REACTIONS (10)
  - Back pain [Unknown]
  - Fungal infection [Unknown]
  - Cervical dysplasia [Unknown]
  - Procedural pain [Unknown]
  - Haemorrhage [Unknown]
  - Asthenia [Unknown]
  - Feeling hot [Unknown]
  - Dizziness [Unknown]
  - Fall [Recovered/Resolved]
  - Cervix carcinoma [Recovered/Resolved]
